FAERS Safety Report 8496970-5 (Version None)
Quarter: 2012Q3

REPORT INFORMATION
  Report Type: 
  Country: None (occurrence: None)
  Receive Date: 20120709
  Receipt Date: 20120604
  Transmission Date: 20120928
  Serious: No
  Sender: FDA-Public Use
  Company Number: US-AMGEN-USASP2012034824

PATIENT
  Age: 58 Year
  Sex: Female

DRUGS (1)
  1. ENBREL [Suspect]
     Indication: RHEUMATOID ARTHRITIS
     Dosage: 50 MG, QWK
     Dates: start: 20040101, end: 20120520

REACTIONS (7)
  - PHARYNGEAL ERYTHEMA [None]
  - PAIN IN EXTREMITY [None]
  - FACIAL PAIN [None]
  - SINUS HEADACHE [None]
  - TOOTHACHE [None]
  - SINUSITIS [None]
  - SWELLING FACE [None]
